FAERS Safety Report 5113382-2 (Version None)
Quarter: 2006Q3

REPORT INFORMATION
  Report Type: 
  Country: None (occurrence: None)
  Receive Date: 20060920
  Receipt Date: 20060907
  Transmission Date: 20061208
  Serious: Yes (Hospitalization)
  Sender: FDA-Public Use
  Company Number: EM2006-0438

PATIENT
  Age: 30 Year
  Sex: Male

DRUGS (6)
  1. TOBI [Suspect]
     Indication: PSEUDOMONAS INFECTION
     Dosage: 300 MG, BID, INHALATION; SEE IMAGE
     Route: 055
     Dates: start: 20060621, end: 20060705
  2. TOBI [Suspect]
     Indication: PSEUDOMONAS INFECTION
     Dosage: 300 MG, BID, INHALATION; SEE IMAGE
     Route: 055
     Dates: start: 20060712, end: 20060726
  3. MYOLASTAN(TETRAZEPAM) [Suspect]
     Indication: CHEST PAIN
     Dosage: 200 MG, ONCE, ORAL
     Route: 048
     Dates: start: 20060719, end: 20060721
  4. ACETAMINOPHEN [Concomitant]
  5. DAFALGAN (PARACETAMOL) [Concomitant]
  6. COLCHICUM JTL LIQ [Concomitant]

REACTIONS (5)
  - DYSPNOEA [None]
  - FATIGUE [None]
  - INCREASED BRONCHIAL SECRETION [None]
  - INFLAMMATION [None]
  - PYREXIA [None]
